FAERS Safety Report 7707564-0 (Version None)
Quarter: 2011Q3

REPORT INFORMATION
  Report Type: 
  Country: None (occurrence: None)
  Receive Date: 20110818
  Receipt Date: 20110813
  Transmission Date: 20111222
  Serious: Yes (Other)
  Sender: FDA-Public Use
  Company Number: A0940986A

PATIENT
  Sex: Female

DRUGS (1)
  1. UREA PEROXIDE [Suspect]
     Indication: EAR DISORDER
     Dosage: AURAL

REACTIONS (3)
  - DEAFNESS [None]
  - EAR DISORDER [None]
  - CONDITION AGGRAVATED [None]
